FAERS Safety Report 10921397 (Version 6)
Quarter: 2015Q2

REPORT INFORMATION
  Report Type: Report from Study
  Country: LB (occurrence: LB)
  Receive Date: 20150317
  Receipt Date: 20150527
  Transmission Date: 20150821
  Serious: Yes (Life-Threatening, Hospitalization, Disabling, Other)
  Sender: FDA-Public Use
  Company Number: LB-SA-2015SA030123

PATIENT
  Age: 72 Year
  Sex: Male

DRUGS (31)
  1. KYTRIL [Concomitant]
     Active Substance: GRANISETRON HYDROCHLORIDE
     Indication: NAUSEA
     Dosage: ONE DAY POST CHEMO
     Dates: start: 20140401, end: 20150513
  2. KYTRIL [Concomitant]
     Active Substance: GRANISETRON HYDROCHLORIDE
     Indication: NAUSEA
     Dosage: FOR 2 DAYS POST CHEMO
     Dates: start: 20140402, end: 20150513
  3. NAFTIDROFURYL OXALATE [Concomitant]
     Active Substance: NAFRONYL OXALATE
     Dates: start: 20141205
  4. HEPARIN [Concomitant]
     Active Substance: HEPARIN SODIUM
     Dates: start: 20141211, end: 20141213
  5. PERTUZUMAB [Suspect]
     Active Substance: PERTUZUMAB
     Indication: HER-2 POSITIVE BREAST CANCER
     Dosage: LOADING DOSE?VIAL
     Route: 042
     Dates: start: 20140401, end: 20140401
  6. PERTUZUMAB [Suspect]
     Active Substance: PERTUZUMAB
     Indication: HER-2 POSITIVE BREAST CANCER
     Dosage: VIAL
     Route: 042
     Dates: start: 20140422, end: 20141105
  7. ZANTAC [Concomitant]
     Active Substance: RANITIDINE HYDROCHLORIDE
     Indication: PROPHYLAXIS
     Dosage: PREMEDICATION ON DAY 1 AND DAY 2 OF CHEMO
     Dates: start: 20140401, end: 20141106
  8. PETHIDINE HYDROCHLORIDE [Concomitant]
     Active Substance: MEPERIDINE
     Dates: start: 20141211, end: 20141213
  9. AMOXICILLIN/CLAVULANATE POTASSIUM [Concomitant]
     Dates: start: 20141020, end: 20141025
  10. CLINDAMYCIN HYDROCHLORIDE. [Concomitant]
     Active Substance: CLINDAMYCIN HYDROCHLORIDE
     Dates: start: 20141028, end: 20141101
  11. NEUTROMAX [Concomitant]
     Dosage: 3 DAYS POST CHEMO FOR 3 DAYS
     Dates: start: 20140403
  12. DOCETAXEL. [Suspect]
     Active Substance: DOCETAXEL
     Indication: HER-2 POSITIVE BREAST CANCER
     Route: 042
     Dates: start: 20140401, end: 20140925
  13. TRASTUZUMAB [Suspect]
     Active Substance: TRASTUZUMAB
     Indication: HER-2 POSITIVE BREAST CANCER
     Dosage: VIAL
     Route: 042
     Dates: start: 20140422, end: 20141106
  14. GASTRIMUT [Concomitant]
     Active Substance: OMEPRAZOLE
     Indication: ABDOMINAL PAIN UPPER
     Dates: start: 20150307
  15. SULODEXIDE [Concomitant]
     Active Substance: SULODEXIDE
     Dosage: DOSE: 2CP/DAILY
     Dates: start: 20141205, end: 20141208
  16. VITAMIN B COMPLEX [Concomitant]
     Active Substance: CYANOCOBALAMIN\DEXPANTHENOL\NIACINAMIDE\PYRIDOXINE HYDROCHLORIDE\RIBOFLAVIN 5^-PHOSPHATE SODIUM\THIAMINE HYDROCHLORIDE\VITAMIN B COMPLEX
     Dates: start: 20141218
  17. ESTECINA [Concomitant]
     Indication: GANGRENE
     Dates: start: 20141028, end: 20141106
  18. KETOPROFEN. [Concomitant]
     Active Substance: KETOPROFEN
     Dates: start: 20141208, end: 20141209
  19. PREDNISONE. [Concomitant]
     Active Substance: PREDNISONE
     Indication: HYPERSENSITIVITY
     Dates: start: 20140331
  20. PREDNISONE. [Concomitant]
     Active Substance: PREDNISONE
     Indication: HYPERSENSITIVITY
     Dates: start: 20140529, end: 20140604
  21. GASTRIMUT [Concomitant]
     Active Substance: OMEPRAZOLE
     Indication: ABDOMINAL PAIN UPPER
     Dosage: POST CHEMO? FOR ONE WEEK
     Dates: start: 20140331, end: 20150513
  22. MOTILIUM [Concomitant]
     Active Substance: DOMPERIDONE
     Indication: NAUSEA
     Dosage: ONE WEEK POST CHEMO
     Dates: start: 20140401, end: 20150513
  23. FEXOFENADINE [Concomitant]
     Active Substance: FEXOFENADINE\FEXOFENADINE HYDROCHLORIDE
     Dosage: 1DF
     Dates: start: 20140331, end: 20150513
  24. SOLU-MEDROL [Concomitant]
     Active Substance: METHYLPREDNISOLONE SODIUM SUCCINATE
     Dates: start: 20140401, end: 20141106
  25. CEFUROXIME. [Concomitant]
     Active Substance: CEFUROXIME
     Dates: start: 20141101
  26. GABAPENTIN. [Concomitant]
     Active Substance: GABAPENTIN
     Dates: start: 20150120
  27. GASTRIMUT [Concomitant]
     Active Substance: OMEPRAZOLE
     Indication: ABDOMINAL PAIN UPPER
     Dates: start: 20141208
  28. AMLODIPINE BESILATE/TELMISARTAN [Concomitant]
     Dosage: 80/5MG
     Dates: start: 20141214, end: 20141217
  29. TRASTUZUMAB [Suspect]
     Active Substance: TRASTUZUMAB
     Indication: HER-2 POSITIVE BREAST CANCER
     Dosage: LOADING DOSE?VIAL
     Route: 042
     Dates: start: 20140401, end: 20140401
  30. LEVOFLOXACIN. [Concomitant]
     Active Substance: LEVOFLOXACIN
  31. HYDROXYZINE [Concomitant]
     Active Substance: HYDROXYZINE\HYDROXYZINE HYDROCHLORIDE
     Dates: start: 20141210, end: 20141215

REACTIONS (2)
  - Gangrene [Recovered/Resolved with Sequelae]
  - Osteomyelitis [Recovered/Resolved]

NARRATIVE: CASE EVENT DATE: 20141105
